FAERS Safety Report 23077675 (Version 1)
Quarter: 2023Q4

REPORT INFORMATION
  Report Type: Spontaneous
  Country: US (occurrence: US)
  Receive Date: 20231018
  Receipt Date: 20231018
  Transmission Date: 20240109
  Serious: No
  Sender: FDA-Public Use
  Company Number: US-ELI_LILLY_AND_COMPANY-US202310009123

PATIENT
  Age: 67 Year
  Sex: Female

DRUGS (6)
  1. MOUNJARO [Suspect]
     Active Substance: TIRZEPATIDE
     Indication: Glycosylated haemoglobin increased
     Dosage: 2.5 MG, UNKNOWN
     Route: 065
     Dates: start: 202308
  2. MOUNJARO [Suspect]
     Active Substance: TIRZEPATIDE
     Indication: Cardiac disorder
  3. MOUNJARO [Suspect]
     Active Substance: TIRZEPATIDE
     Indication: Overweight
  4. MOUNJARO [Suspect]
     Active Substance: TIRZEPATIDE
     Indication: Glycosylated haemoglobin increased
     Dosage: 5 MG, UNKNOWN
     Route: 065
  5. MOUNJARO [Suspect]
     Active Substance: TIRZEPATIDE
     Indication: Cardiac disorder
  6. MOUNJARO [Suspect]
     Active Substance: TIRZEPATIDE
     Indication: Overweight

REACTIONS (3)
  - Off label use [Unknown]
  - Injection site erythema [Unknown]
  - Injection site pruritus [Unknown]

NARRATIVE: CASE EVENT DATE: 20230912
